FAERS Safety Report 9109445 (Version 1)
Quarter: 2013Q1

REPORT INFORMATION
  Report Type: Spontaneous
  Country: AU (occurrence: AU)
  Receive Date: 20130222
  Receipt Date: 20130222
  Transmission Date: 20140127
  Serious: Yes (Other)
  Sender: FDA-Public Use
  Company Number: AU-JNJFOC-20130210162

PATIENT
  Age: 67 Year
  Sex: Female

DRUGS (1)
  1. NICORETTE [Suspect]
     Indication: SMOKING CESSATION THERAPY
     Route: 048
     Dates: start: 20120101

REACTIONS (3)
  - Nicotine dependence [Unknown]
  - Incorrect drug administration duration [Unknown]
  - Dizziness [Not Recovered/Not Resolved]
